FAERS Safety Report 18664531 (Version 3)
Quarter: 2021Q1

REPORT INFORMATION
  Report Type: Other
  Country: CH (occurrence: CZ)
  Receive Date: 20201225
  Receipt Date: 20210128
  Transmission Date: 20210419
  Serious: Yes (Death, Other)
  Sender: FDA-Public Use
  Company Number: CZ-ASTELLAS-2020US045051

PATIENT
  Age: 16 Year
  Sex: Male
  Weight: 35 kg

DRUGS (7)
  1. AMPHOTERICIN B, LIPOSOME [Suspect]
     Active Substance: AMPHOTERICIN B
     Indication: MUCORMYCOSIS
     Dosage: UNK UNK, UNKNOWN FREQ.
     Route: 065
     Dates: start: 20201206, end: 20201213
  2. ISAVUCONAZOLE [Suspect]
     Active Substance: ISAVUCONAZOLE
     Indication: MUCORMYCOSIS
     Dosage: 200 MG, EVERY 8 HOURS (CONCENTRATE FOR SOLUTION FOR INFUSION)
     Route: 042
     Dates: start: 20201209, end: 20201210
  3. ISAVUCONAZOLE [Suspect]
     Active Substance: ISAVUCONAZOLE
     Dosage: 200 MG, ONCE DAILY (CONCENTRATE FOR SOLUTION FOR INFUSION)
     Route: 042
     Dates: start: 20201211, end: 20201213
  4. ZAVICEFTA [Suspect]
     Active Substance: AVIBACTAM SODIUM\CEFTAZIDIME
     Indication: ESCHERICHIA INFECTION
  5. ZAVICEFTA [Suspect]
     Active Substance: AVIBACTAM SODIUM\CEFTAZIDIME
     Indication: PNEUMONIA KLEBSIELLA
     Dosage: UNK UNK, UNKNOWN FREQ.
     Route: 065
     Dates: start: 20201207, end: 20201213
  6. MYCAMINE [Concomitant]
     Active Substance: MICAFUNGIN SODIUM
     Indication: MUCORMYCOSIS
     Dosage: UNK UNK, UNKNOWN FREQ.(CONSTANTY ADMISTERED WITH THE EXCEPTION OF 4 DAYS )
     Route: 065
     Dates: start: 202009, end: 20201206
  7. NOXAFIL [Concomitant]
     Active Substance: POSACONAZOLE
     Indication: MUCORMYCOSIS
     Dosage: UNK UNK, UNKNOWN FREQ. (STOPPED 6 WEEKS)
     Route: 048
     Dates: start: 20201027, end: 20201208

REACTIONS (4)
  - Off label use [Unknown]
  - Pneumonia fungal [Fatal]
  - Disease progression [Fatal]
  - Respiratory failure [Fatal]

NARRATIVE: CASE EVENT DATE: 20201209
